FAERS Safety Report 12194052 (Version 1)
Quarter: 2016Q1

REPORT INFORMATION
  Report Type: Spontaneous
  Country: IT (occurrence: IT)
  Receive Date: 20160321
  Receipt Date: 20160321
  Transmission Date: 20160526
  Serious: Yes (Other)
  Sender: FDA-Public Use
  Company Number: IT-ACCORD-038708

PATIENT
  Age: 53 Year
  Sex: Male

DRUGS (6)
  1. VALGANCICLOVIR/VALGANCICLOVIR HYDROCHLORIDE [Suspect]
     Active Substance: VALGANCICLOVIR
     Indication: PROPHYLAXIS
     Dosage: VGCVPROPHYLAXIS 900MG/DIE
  2. TACROLIMUS. [Suspect]
     Active Substance: TACROLIMUS
     Indication: IMMUNOSUPPRESSION
     Dosage: 0.2MG/KG/DIE TO ACHIEVE TROUGH LEVEL OF 8-10 NG/ML FOR THE FIRST MONTH AND 5-8 NG/ML THEREAFTER
  3. GANCICLOVIR. [Concomitant]
     Active Substance: GANCICLOVIR
     Indication: PROPHYLAXIS
  4. PREDNISONE. [Suspect]
     Active Substance: PREDNISONE
     Indication: IMMUNOSUPPRESSION
     Dosage: IV AND THEN PER OS STEROIDS TAPERED TO A MAINTENANCE DOSE
     Route: 048
  5. MYCOPHENOLATE MOFETIL/MYCOPHENOLATE SODIUM/MYCOPHENOLIC ACD [Suspect]
     Active Substance: MYCOPHENOLIC ACID
     Indication: IMMUNOSUPPRESSION
  6. BASILIXIMAB [Suspect]
     Active Substance: BASILIXIMAB
     Indication: IMMUNOSUPPRESSION

REACTIONS (3)
  - Blood creatinine increased [Recovered/Resolved]
  - Cytomegalovirus infection [Recovered/Resolved]
  - Immunosuppressant drug level increased [Recovered/Resolved]
